FAERS Safety Report 12206964 (Version 3)
Quarter: 2016Q2

REPORT INFORMATION
  Report Type: Spontaneous
  Country: JP (occurrence: JP)
  Receive Date: 20160324
  Receipt Date: 20160420
  Transmission Date: 20160815
  Serious: Yes (Life-Threatening, Other)
  Sender: FDA-Public Use
  Company Number: JP-009507513-1603JPN009240

PATIENT
  Age: 87 Year
  Sex: Male
  Weight: 64 kg

DRUGS (7)
  1. ALDIOXA [Concomitant]
     Active Substance: ALDIOXA
     Indication: GASTRITIS
     Dosage: DAILY DOSAGE UNKNOWN, BID
     Route: 048
     Dates: start: 2015
  2. BELSOMRA [Suspect]
     Active Substance: SUVOREXANT
     Indication: INSOMNIA
     Dosage: 15 MG, QD
     Route: 048
     Dates: start: 20160216
  3. AMLODIN (AMLODIPINE BESYLATE) [Concomitant]
     Active Substance: AMLODIPINE BESYLATE
     Indication: HYPERTENSION
     Dosage: 5 MG, QD
     Route: 048
     Dates: start: 20070525
  4. MASHININ-GAN [Concomitant]
     Active Substance: HERBALS
     Indication: CONSTIPATION
     Dosage: 2.5 MG, TID
     Route: 048
     Dates: start: 20160114
  5. BELSOMRA [Suspect]
     Active Substance: SUVOREXANT
     Indication: RESTLESSNESS
  6. VALSARTAN. [Concomitant]
     Active Substance: VALSARTAN
     Indication: HYPERTENSION
     Dosage: 80 MG, QD
     Route: 048
     Dates: start: 20070709
  7. YOKU-KAN-SAN [Concomitant]
     Indication: INSOMNIA
     Dosage: 2.5 G, BID
     Route: 048
     Dates: start: 20140826

REACTIONS (3)
  - Abnormal dreams [Unknown]
  - Restlessness [Recovered/Resolved]
  - Loss of consciousness [Recovered/Resolved]

NARRATIVE: CASE EVENT DATE: 201603
